FAERS Safety Report 18150737 (Version 1)
Quarter: 2020Q3

REPORT INFORMATION
  Report Type: Spontaneous
  Country: GB (occurrence: GB)
  Receive Date: 20200814
  Receipt Date: 20200814
  Transmission Date: 20201103
  Serious: Yes (Other)
  Sender: FDA-Public Use
  Company Number: GB-PERRIGO-20GB011187

PATIENT
  Age: 74 Year
  Sex: Male
  Weight: 83 kg

DRUGS (20)
  1. NORZOL 40MG/ML PL00427/0068 [Suspect]
     Active Substance: METRONIDAZOLE BENZOATE
     Dosage: 200 MG
     Dates: start: 20200602
  2. MONOMIL [Concomitant]
     Active Substance: ISOSORBIDE MONONITRATE
     Dosage: EACH MORNING.
     Dates: start: 20191023
  3. ALLOPURINOL. [Concomitant]
     Active Substance: ALLOPURINOL
     Dosage: AFTER FOOD.
     Dates: start: 20191023
  4. BALNEUM                            /00103901/ [Concomitant]
     Dosage: APPLY.
     Dates: start: 20191023
  5. NOVORAPID [Concomitant]
     Active Substance: INSULIN ASPART
     Dosage: USE AS DIRECTED.
     Dates: start: 20191023
  6. FOLIC ACID. [Concomitant]
     Active Substance: FOLIC ACID
     Dosage: 1 DF
     Dates: start: 20200428, end: 20200526
  7. CLOPIDOGREL [Concomitant]
     Active Substance: CLOPIDOGREL BISULFATE
     Dosage: 1 DF, QD
     Dates: start: 20191023
  8. METFORMIN [Concomitant]
     Active Substance: METFORMIN HYDROCHLORIDE
     Dosage: 2 DF, QD
     Dates: start: 20191023
  9. NORZOL 40MG/ML PL00427/0068 [Suspect]
     Active Substance: METRONIDAZOLE BENZOATE
     Indication: PRODUCT USED FOR UNKNOWN INDICATION
     Dosage: 3 DF, QD
     Dates: start: 20200518, end: 20200525
  10. RAMIPRIL. [Concomitant]
     Active Substance: RAMIPRIL
     Dosage: 1 DF, QD
     Dates: start: 20191023
  11. LEVEMIR [Concomitant]
     Active Substance: INSULIN DETEMIR
     Dosage: USE AS DIRECTED.
     Dates: start: 20191023
  12. ATENOLOL. [Concomitant]
     Active Substance: ATENOLOL
     Dosage: EACH MORNING.
     Dates: start: 20191023
  13. FERROUS SULFATE. [Concomitant]
     Active Substance: FERROUS SULFATE
     Dosage: 3 DF, QD
     Dates: start: 20200428, end: 20200526
  14. FLUOXETINE [Concomitant]
     Active Substance: FLUOXETINE HYDROCHLORIDE
     Dosage: 3 DF, QD
     Dates: start: 20191023
  15. GLUCOSE [Concomitant]
     Active Substance: DEXTROSE
     Dosage: USE AS DIRECTED.
     Dates: start: 20191023
  16. LANSOPRAZOLE. [Concomitant]
     Active Substance: LANSOPRAZOLE
     Dosage: 1 DF, QD
     Dates: start: 20191023
  17. AMOXICILLIN. [Suspect]
     Active Substance: AMOXICILLIN
     Indication: PRODUCT USED FOR UNKNOWN INDICATION
     Dosage: 3 DF, QD
     Dates: start: 20200518, end: 20200525
  18. FUROSEMIDE. [Concomitant]
     Active Substance: FUROSEMIDE
     Dosage: 1 DF, QD
     Dates: start: 20191023, end: 20200518
  19. ATORVASTATIN [Concomitant]
     Active Substance: ATORVASTATIN
     Dosage: 1 DF, QD
     Dates: start: 20191023
  20. NICORANDIL [Concomitant]
     Active Substance: NICORANDIL
     Dosage: 2 DF, QD
     Dates: start: 20191023

REACTIONS (2)
  - Hypersensitivity [Unknown]
  - Lip swelling [Recovered/Resolved]

NARRATIVE: CASE EVENT DATE: 20200602
